FAERS Safety Report 12532952 (Version 1)
Quarter: 2016Q3

REPORT INFORMATION
  Report Type: Spontaneous
  Country: US (occurrence: US)
  Receive Date: 20160706
  Receipt Date: 20160706
  Transmission Date: 20161109
  Serious: No
  Sender: FDA-Public Use
  Company Number: US-PURDUE-USA-2015-0125534

PATIENT
  Sex: Female

DRUGS (6)
  1. BUTRANS [Suspect]
     Active Substance: BUPRENORPHINE
     Dosage: 5 MCG/HR, UNK
     Route: 062
     Dates: start: 2015
  2. VICODIN [Concomitant]
     Active Substance: ACETAMINOPHEN\HYDROCODONE BITARTRATE
     Indication: BREAKTHROUGH PAIN
     Dosage: UNK MG, UNK
     Route: 048
  3. OXYCODONE HCL IR CAPSULES [Concomitant]
     Active Substance: OXYCODONE HYDROCHLORIDE
     Indication: BREAKTHROUGH PAIN
     Dosage: UNK MG, UNK
     Route: 048
  4. BUTRANS [Suspect]
     Active Substance: BUPRENORPHINE
     Dosage: 15 MCG/HR, WEEKLY
     Route: 062
     Dates: start: 20150814
  5. BUTRANS [Suspect]
     Active Substance: BUPRENORPHINE
     Indication: PRODUCT USED FOR UNKNOWN INDICATION
     Dosage: 20 MCG/HR, UNK
     Route: 062
     Dates: start: 201507
  6. BUTRANS [Suspect]
     Active Substance: BUPRENORPHINE
     Dosage: 10 MCG/HR, WEEKLY
     Route: 062

REACTIONS (9)
  - Application site discolouration [Unknown]
  - Wrong technique in product usage process [Recovered/Resolved]
  - Application site pruritus [Unknown]
  - Drug ineffective [Unknown]
  - Inadequate analgesia [Unknown]
  - Pain [Unknown]
  - Application site irritation [Unknown]
  - Application site pain [Unknown]
  - Euphoric mood [Recovered/Resolved]

NARRATIVE: CASE EVENT DATE: 20150808
